FAERS Safety Report 8075897-7 (Version None)
Quarter: 2012Q1

REPORT INFORMATION
  Report Type: 
  Country: None (occurrence: None)
  Receive Date: 20120125
  Receipt Date: 20120125
  Transmission Date: 20120608
  Serious: Yes (Hospitalization)
  Sender: FDA-Public Use
  Company Number: None

PATIENT
  Age: 70 Year
  Sex: Male
  Weight: 122.6 kg

DRUGS (2)
  1. PIPERACILLIN AND TAZOBACTAM [Suspect]
     Indication: URINARY TRACT INFECTION
     Dosage: 3.375 GM QID IV
     Route: 042
     Dates: start: 20111228, end: 20120102
  2. VANCOMYCIN [Suspect]
     Indication: URINARY TRACT INFECTION
     Dosage: 1 GM BID IV
     Route: 042
     Dates: start: 20111230, end: 20120102

REACTIONS (3)
  - HYPOTENSION [None]
  - TACHYCARDIA [None]
  - RASH [None]
